FAERS Safety Report 8651430 (Version 4)
Quarter: 2013Q3

REPORT INFORMATION
  Report Type: Spontaneous
  Country: US (occurrence: US)
  Receive Date: 20120706
  Receipt Date: 20130726
  Transmission Date: 20140515
  Serious: No
  Sender: FDA-Public Use
  Company Number: US-BIOGENIDEC-2012BI022710

PATIENT
  Sex: Female

DRUGS (3)
  1. AVONEX [Suspect]
     Indication: MULTIPLE SCLEROSIS
     Route: 030
     Dates: start: 19960719, end: 20060512
  2. AVONEX [Suspect]
     Indication: MULTIPLE SCLEROSIS
     Route: 030
     Dates: start: 20061101
  3. AVONEX [Suspect]
     Indication: MULTIPLE SCLEROSIS
     Route: 030

REACTIONS (8)
  - Visual impairment [Not Recovered/Not Resolved]
  - Gait disturbance [Not Recovered/Not Resolved]
  - Memory impairment [Unknown]
  - Diplopia [Recovered/Resolved]
  - Fear of injection [Not Recovered/Not Resolved]
  - General symptom [Recovered/Resolved]
  - Anxiety [Recovered/Resolved]
  - Insomnia [Recovered/Resolved]
